FAERS Safety Report 4950543-7 (Version None)
Quarter: 2006Q1

REPORT INFORMATION
  Report Type: 
  Country: None (occurrence: None)
  Receive Date: 20060127
  Receipt Date: 20050610
  Transmission Date: 20060701
  Serious: Yes (Hospitalization, Other)
  Sender: FDA-Public Use
  Company Number: 05-06-1029

PATIENT
  Age: 75 Year
  Sex: Male

DRUGS (3)
  1. CLOZAPINE [Suspect]
     Indication: DELUSION
     Dosage: 25MG QD, ORAL
     Route: 048
     Dates: start: 20030101
  2. CLOZAPINE [Suspect]
     Indication: DEPRESSION
     Dosage: 25MG QD, ORAL
     Route: 048
     Dates: start: 20030101
  3. CLOZAPINE [Suspect]
     Indication: HALLUCINATION
     Dosage: 25MG QD, ORAL
     Route: 048
     Dates: start: 20030101

REACTIONS (1)
  - PNEUMONIA [None]
